FAERS Safety Report 15264331 (Version 1)
Quarter: 2018Q3

REPORT INFORMATION
  Report Type: Spontaneous
  Country: US (occurrence: US)
  Receive Date: 20180721
  Receipt Date: 20180721
  Transmission Date: 20181010
  Serious: Yes (Hospitalization)
  Sender: FDA-Public Use
  Company Number: None

PATIENT
  Age: 15 Year
  Sex: Male
  Weight: 65.9 kg

DRUGS (4)
  1. METHOTHREXATE [Suspect]
     Active Substance: METHOTREXATE SODIUM
     Dates: end: 20180706
  2. DEXAMETHASONE. [Suspect]
     Active Substance: DEXAMETHASONE
     Dates: end: 20180612
  3. MERCAPTOPURINE. [Suspect]
     Active Substance: MERCAPTOPURINE
     Dates: end: 20180709
  4. VINCRISTINE SULFATE. [Suspect]
     Active Substance: VINCRISTINE SULFATE

REACTIONS (6)
  - Abdominal pain [None]
  - Ascites [None]
  - Venoocclusive liver disease [None]
  - Retroperitoneal oedema [None]
  - Hepatitis [None]
  - Jaundice [None]

NARRATIVE: CASE EVENT DATE: 20180716
